FAERS Safety Report 18527287 (Version 1)
Quarter: 2020Q4

REPORT INFORMATION
  Report Type: Spontaneous
  Country: US (occurrence: US)
  Receive Date: 20201120
  Receipt Date: 20201120
  Transmission Date: 20210114
  Serious: Yes (Hospitalization)
  Sender: FDA-Public Use
  Company Number: None

PATIENT
  Age: 56 Year
  Sex: Male
  Weight: 145.6 kg

DRUGS (1)
  1. TOPOTECAN [Suspect]
     Active Substance: TOPOTECAN HYDROCHLORIDE
     Dates: end: 20201107

REACTIONS (4)
  - White blood cell count decreased [None]
  - Neutrophil count decreased [None]
  - Asthenia [None]
  - Platelet count decreased [None]

NARRATIVE: CASE EVENT DATE: 20201109
